FAERS Safety Report 10716481 (Version 2)
Quarter: 2015Q1

REPORT INFORMATION
  Report Type: Spontaneous
  Country: US (occurrence: US)
  Receive Date: 20150116
  Receipt Date: 20150119
  Transmission Date: 20150721
  Serious: Yes (Death)
  Sender: FDA-Public Use
  Company Number: US-PFIZER INC-2015007873

PATIENT
  Age: 18 Year
  Sex: Male

DRUGS (2)
  1. ACETAMINOPHEN/DEXTROMETHORPHAN HYDROBROMIDE/DOXYLAMINE SUCCINATE [Suspect]
     Active Substance: ACETAMINOPHEN\DEXTROMETHORPHAN HYDROBROMIDE\DOXYLAMINE SUCCINATE
     Dosage: UNK
     Route: 048
  2. DIPHENHYDRAMINE [Suspect]
     Active Substance: DIPHENHYDRAMINE
     Dosage: UNK
     Route: 048

REACTIONS (4)
  - Exposure via ingestion [None]
  - Intentional product misuse [None]
  - Completed suicide [Fatal]
  - Toxicity to various agents [None]

NARRATIVE: CASE EVENT DATE: 2013
